FAERS Safety Report 9768626 (Version 1)
Quarter: 2013Q4

REPORT INFORMATION
  Report Type: Report from Study
  Country: US (occurrence: US)
  Receive Date: 20131218
  Receipt Date: 20131218
  Transmission Date: 20140711
  Serious: Yes (Other)
  Sender: FDA-Public Use
  Company Number: US-ROCHE-1321141

PATIENT
  Age: 76 Year
  Sex: Female
  Weight: 59.02 kg

DRUGS (1)
  1. XELODA [Suspect]
     Indication: BREAST CANCER METASTATIC
     Route: 048
     Dates: start: 20131211, end: 20131212

REACTIONS (2)
  - Transient ischaemic attack [Recovering/Resolving]
  - Blood pressure increased [Recovered/Resolved]
